FAERS Safety Report 7080846-4 (Version None)
Quarter: 2010Q4

REPORT INFORMATION
  Report Type: 
  Country: None (occurrence: None)
  Receive Date: 20101103
  Receipt Date: 20101022
  Transmission Date: 20110411
  Serious: Yes (Hospitalization)
  Sender: FDA-Public Use
  Company Number: GB-PFIZER INC-2010090762

PATIENT
  Age: 79 Year
  Sex: Male

DRUGS (12)
  1. ATORVASTATIN CALCIUM [Suspect]
     Indication: HYPERCHOLESTEROLAEMIA
     Dosage: 20 MG, 1X/DAY
     Route: 048
     Dates: end: 20100712
  2. RAMIPRIL [Suspect]
     Indication: HYPERTENSION
     Dosage: 7.5 MG, 1X/DAY
     Route: 048
  3. RAMIPRIL [Suspect]
     Indication: LEFT VENTRICULAR FAILURE
  4. METFORMIN HCL [Suspect]
     Indication: DIABETES MELLITUS
     Dosage: 500 MG, 3X/DAY
     Route: 048
  5. BENDROFLUMETHIAZIDE [Suspect]
     Indication: DIURETIC THERAPY
     Dosage: 2.5 MG, 1X/DAY
     Route: 048
  6. FUROSEMIDE [Suspect]
     Indication: FLUID OVERLOAD
     Dosage: 40 MG, 1X/DAY
     Route: 048
  7. OXYCONTIN [Suspect]
     Indication: PHANTOM PAIN
     Dosage: 40 MG, 2X/DAY
     Route: 048
  8. OXYNORM [Suspect]
     Indication: BREAKTHROUGH PAIN
     Dosage: 10 MG, 4X/DAY
     Route: 048
     Dates: end: 20100712
  9. ACETYLSALICYLIC ACID [Concomitant]
     Dosage: 75 MG, 1X/DAY
  10. DOXYCYCLINE [Concomitant]
     Dosage: 100 MG, UNK
  11. PARACETAMOL [Concomitant]
     Dosage: 500 MG, UNK
  12. PF-05020182 AND PREGABALIN [Concomitant]
     Dosage: 75 MG, UNK

REACTIONS (10)
  - ACCIDENTAL OVERDOSE [None]
  - BLOOD CREATINE PHOSPHOKINASE INCREASED [None]
  - CONFUSIONAL STATE [None]
  - DEHYDRATION [None]
  - ERYTHEMA [None]
  - HYPOPHAGIA [None]
  - MIOSIS [None]
  - NARCOTIC INTOXICATION [None]
  - RENAL FAILURE ACUTE [None]
  - SOMNOLENCE [None]
